FAERS Safety Report 9482725 (Version 1)
Quarter: 2013Q3

REPORT INFORMATION
  Report Type: Spontaneous
  Country: JP (occurrence: JP)
  Receive Date: 20130828
  Receipt Date: 20130828
  Transmission Date: 20140515
  Serious: Yes (Death)
  Sender: FDA-Public Use
  Company Number: JP-ABBOTT-13P-087-1139641-00

PATIENT
  Age: 85 Year
  Sex: Male

DRUGS (2)
  1. LEUPLIN FOR INJECTION KIT 3.75 (LEUPRORELIN ACETATE) [Suspect]
     Indication: PROSTATE CANCER
     Route: 058
  2. ZOMETA [Concomitant]
     Indication: PRODUCT USED FOR UNKNOWN INDICATION
     Route: 050

REACTIONS (1)
  - Death [Fatal]
